FAERS Safety Report 9344746 (Version 1)
Quarter: 2013Q2

REPORT INFORMATION
  Report Type: Spontaneous
  Country: SE (occurrence: SE)
  Receive Date: 20130612
  Receipt Date: 20130612
  Transmission Date: 20140414
  Serious: Yes (Life-Threatening, Other)
  Sender: FDA-Public Use
  Company Number: SE-009507513-1306SWE002788

PATIENT
  Age: 65 Year
  Sex: Male

DRUGS (3)
  1. MK-0733 [Suspect]
     Indication: HYPERCHOLESTEROLAEMIA
     Dosage: 10 MG, QD
     Route: 048
     Dates: start: 20100906, end: 20121026
  2. LAMOTRIGINE [Concomitant]
  3. ADALAT [Concomitant]

REACTIONS (3)
  - Pain [Recovered/Resolved]
  - Pancreatitis [Recovered/Resolved]
  - Pyrexia [Recovered/Resolved]
